FAERS Safety Report 4447763-7 (Version None)
Quarter: 2004Q3

REPORT INFORMATION
  Report Type: 
  Country: None (occurrence: None)
  Receive Date: 20040913
  Receipt Date: 20040901
  Transmission Date: 20050211
  Serious: Yes (Death, Hospitalization)
  Sender: FDA-Public Use
  Company Number: 200413245FR

PATIENT
  Age: 81 Year
  Sex: Male

DRUGS (12)
  1. TOPALGIC [Suspect]
     Route: 048
     Dates: start: 20040701, end: 20040803
  2. LASIX [Suspect]
     Route: 048
     Dates: start: 20040723, end: 20040803
  3. TRIATEC [Suspect]
     Route: 048
     Dates: start: 20040723, end: 20040803
  4. ALDACTONE [Suspect]
     Route: 048
     Dates: start: 20040701, end: 20040803
  5. KALEORID [Suspect]
     Route: 048
     Dates: start: 20040723, end: 20040803
  6. ASPIRIN [Suspect]
     Route: 048
     Dates: start: 20040723, end: 20040803
  7. TORENTAL [Concomitant]
     Route: 048
     Dates: start: 20040701
  8. LOVENOX [Concomitant]
     Dates: start: 20040723, end: 20040726
  9. FONZYLANE [Concomitant]
     Dates: start: 20040701
  10. DIGOXIN [Concomitant]
     Dates: start: 20040701
  11. PLAVIX [Concomitant]
     Route: 048
     Dates: start: 20040729
  12. FRAXODI [Concomitant]
     Route: 058
     Dates: start: 20040801

REACTIONS (9)
  - CYANOSIS [None]
  - CYTOLYTIC HEPATITIS [None]
  - HEPATIC FAILURE [None]
  - HEPATITIS FULMINANT [None]
  - RENAL FAILURE ACUTE [None]
  - SHOCK [None]
  - SKIN ULCER [None]
  - URINARY RETENTION [None]
  - VENOUS PRESSURE JUGULAR INCREASED [None]
